FAERS Safety Report 21279268 (Version 1)
Quarter: 2022Q3

REPORT INFORMATION
  Report Type: Spontaneous
  Country: US (occurrence: US)
  Receive Date: 20220901
  Receipt Date: 20220901
  Transmission Date: 20221027
  Serious: No
  Sender: FDA-Public Use
  Company Number: US-BRISTOL-MYERS SQUIBB COMPANY-2022-097217

PATIENT
  Age: 53 Year
  Sex: Female
  Weight: 55.4 kg

DRUGS (2)
  1. OPDIVO [Suspect]
     Active Substance: NIVOLUMAB
     Indication: Breast neoplasm
     Dosage: STRENGTH AND PRESENTATION OF THE AE : 240MG VIAL
     Route: 042
  2. OPDIVO [Suspect]
     Active Substance: NIVOLUMAB
     Indication: Bone neoplasm

REACTIONS (1)
  - Intentional product use issue [Unknown]
